FAERS Safety Report 20324690 (Version 1)
Quarter: 2022Q1

REPORT INFORMATION
  Report Type: Spontaneous
  Country: US (occurrence: US)
  Receive Date: 20220111
  Receipt Date: 20220111
  Transmission Date: 20220423
  Serious: No
  Sender: FDA-Public Use
  Company Number: US-FOUNDATIONCONSUMERHC-2021-US-027365

PATIENT
  Age: 15 Year
  Sex: Female
  Weight: 86.18 kg

DRUGS (1)
  1. PLAN B ONE-STEP [Suspect]
     Active Substance: LEVONORGESTREL
     Indication: Post coital contraception
     Dosage: 1.5 MG X 3 DOSES
     Route: 048
     Dates: start: 2020, end: 20211223

REACTIONS (5)
  - Headache [Recovered/Resolved]
  - Abdominal discomfort [Recovered/Resolved]
  - Intentional product misuse [Recovered/Resolved]
  - Product use in unapproved indication [Recovered/Resolved]
  - Vomiting [Recovered/Resolved]

NARRATIVE: CASE EVENT DATE: 20200101
